FAERS Safety Report 8115451-1 (Version None)
Quarter: 2012Q1

REPORT INFORMATION
  Report Type: 
  Country: None (occurrence: None)
  Receive Date: 20120206
  Receipt Date: 20120127
  Transmission Date: 20120608
  Serious: Yes (Other)
  Sender: FDA-Public Use
  Company Number: GB-PFIZER INC-2012030457

PATIENT
  Age: 73 Year
  Sex: Male

DRUGS (2)
  1. PANTOPRAZOLE [Suspect]
     Indication: GASTROINTESTINAL HAEMORRHAGE
     Dosage: 240 ML (10 ML,1 IN 1 HR)
     Route: 042
     Dates: start: 20120109, end: 20120109
  2. PANTOPRAZOLE [Suspect]
     Dosage: 600 ML (25 ML,1 IN 1 HR)
     Route: 042
     Dates: start: 20120109, end: 20120109

REACTIONS (5)
  - CATHETER SITE PAIN [None]
  - INJECTION SITE ERYTHEMA [None]
  - INJECTION SITE INFLAMMATION [None]
  - INJECTION SITE PHLEBITIS [None]
  - CATHETER SITE RELATED REACTION [None]
